FAERS Safety Report 8585049-X (Version None)
Quarter: 2012Q3

REPORT INFORMATION
  Report Type: 
  Country: None (occurrence: None)
  Receive Date: 20120810
  Receipt Date: 20120802
  Transmission Date: 20120928
  Serious: No
  Sender: FDA-Public Use
  Company Number: US-US-EMD SERONO, INC.-7045426

PATIENT
  Sex: Male

DRUGS (3)
  1. REBIF [Suspect]
     Indication: MULTIPLE SCLEROSIS
     Route: 058
     Dates: start: 20100423, end: 20101201
  2. REBIF [Suspect]
     Route: 058
     Dates: start: 20101201
  3. ADVIL [Concomitant]
     Indication: PREMEDICATION

REACTIONS (6)
  - HEPATIC ENZYME INCREASED [None]
  - ABDOMINAL DISCOMFORT [None]
  - PAIN [None]
  - FATIGUE [None]
  - INJECTION SITE RASH [None]
  - HYPOAESTHESIA [None]
